FAERS Safety Report 4431393-7 (Version None)
Quarter: 2004Q3

REPORT INFORMATION
  Report Type: 
  Country: None (occurrence: None)
  Receive Date: 20040820
  Receipt Date: 20040820
  Transmission Date: 20050211
  Serious: Yes (Hospitalization)
  Sender: FDA-Public Use
  Company Number: None

PATIENT
  Age: 16 Year
  Sex: Male
  Weight: 57 kg

DRUGS (1)
  1. COMBIVIR [Suspect]
     Indication: HIV INFECTION
     Dosage: 1 TABLET PO BID
     Route: 048
     Dates: start: 20040101, end: 20040807

REACTIONS (5)
  - ANAEMIA MEGALOBLASTIC [None]
  - ASTHENIA [None]
  - DECREASED ACTIVITY [None]
  - LETHARGY [None]
  - TACHYCARDIA [None]
